FAERS Safety Report 9267696 (Version 1)
Quarter: 2013Q2

REPORT INFORMATION
  Report Type: Report from Study
  Country: US (occurrence: US)
  Receive Date: 20130502
  Receipt Date: 20130502
  Transmission Date: 20140414
  Serious: No
  Sender: FDA-Public Use
  Company Number: US-ALEXION-A201200827

PATIENT
  Age: 11 Year
  Sex: Female
  Weight: 58.9 kg

DRUGS (26)
  1. SOLIRIS 300MG [Suspect]
     Indication: PAROXYSMAL NOCTURNAL HAEMOGLOBINURIA
     Dosage: 900 MG, QW
     Route: 042
     Dates: start: 20120422
  2. SOLIRIS 300MG [Suspect]
     Indication: HAEMOLYTIC URAEMIC SYNDROME
  3. ACYCLOVIR [Concomitant]
     Indication: RENAL IMPAIRMENT
     Dosage: 400 MG, QD
     Route: 048
     Dates: start: 201003
  4. ADVAIR [Concomitant]
     Indication: BRONCHIAL HYPERREACTIVITY
     Dosage: 2 PUFFS, BID - INHALATION (115/21)
  5. AZITHROMYCIN [Concomitant]
     Indication: PRODUCT USED FOR UNKNOWN INDICATION
     Dosage: 500 MG, QD
     Route: 048
     Dates: start: 20120413, end: 20120423
  6. CHLOROTHIAZIDE [Concomitant]
     Indication: PRODUCT USED FOR UNKNOWN INDICATION
     Dosage: 500 MG, BID (IV CHANGED ON 18APR2012)
     Route: 042
     Dates: start: 20120316
  7. CIPROFLOXACIN [Concomitant]
     Indication: ANTIBIOTIC PROPHYLAXIS
     Dosage: 500
     Route: 048
     Dates: start: 20120422
  8. CLONIDINE [Concomitant]
     Indication: PRODUCT USED FOR UNKNOWN INDICATION
     Dosage: 0.3 MG, QW
     Route: 062
     Dates: start: 20120417
  9. ERGOCALCIFEROL [Concomitant]
     Indication: PRODUCT USED FOR UNKNOWN INDICATION
     Dosage: 50000 UT, QW (EVERY MONDAY)
     Route: 048
  10. FILGRASTIM [Concomitant]
     Indication: PRODUCT USED FOR UNKNOWN INDICATION
     Dosage: 50 MCG QD PRN ({3WBO)
     Route: 042
  11. FUROSEMIDE [Concomitant]
     Indication: PRODUCT USED FOR UNKNOWN INDICATION
     Dosage: 40 MG, BID
     Route: 042
     Dates: start: 20120418, end: 20120421
  12. GENTIAN VIOLET [Concomitant]
     Indication: ORAL CANDIDIASIS
     Dosage: 5 ML, QD X 3 DAYS
     Route: 065
     Dates: start: 20120418
  13. IMMUNOGLOBULIN [Concomitant]
     Indication: PRODUCT USED FOR UNKNOWN INDICATION
     Dosage: 30 G PRN IGG {750
     Route: 042
  14. INSULIN [Concomitant]
     Indication: PRODUCT USED FOR UNKNOWN INDICATION
     Dosage: 1.5 UNIT/HOUR GTT
     Dates: start: 20120422
  15. LUPRON DEPOT [Concomitant]
     Indication: PRODUCT USED FOR UNKNOWN INDICATION
     Dosage: 11.25 MG Q90D (DUE 20MAY2012)
     Route: 030
  16. SOLUMEDROL [Concomitant]
     Indication: PRODUCT USED FOR UNKNOWN INDICATION
     Dosage: 25 MG, BID
     Route: 042
     Dates: start: 20120420, end: 20120423
  17. MICAFUNGIN [Concomitant]
     Indication: PRODUCT USED FOR UNKNOWN INDICATION
     Dosage: 100 MG, QD
     Route: 042
     Dates: start: 20120420
  18. MULTIPLE VITAMINS [Concomitant]
     Indication: PRODUCT USED FOR UNKNOWN INDICATION
     Dosage: 1 TABLET QD
     Route: 048
     Dates: start: 20120206
  19. MYCOPHENOLATE [Concomitant]
     Indication: PRODUCT USED FOR UNKNOWN INDICATION
     Dosage: 500 MG, BID
     Route: 048
     Dates: start: 20120417
  20. NICARDIPINE [Concomitant]
     Indication: PRODUCT USED FOR UNKNOWN INDICATION
     Dosage: 1 MCG/KG/MIN
     Route: 065
  21. ONDANSETRON [Concomitant]
     Indication: PRODUCT USED FOR UNKNOWN INDICATION
     Dosage: 8 MG QAM PRN
     Route: 048
  22. DITROPAN [Concomitant]
     Indication: ENURESIS
     Dosage: 5 MG, QID
     Route: 048
  23. PANTOPRAZOLE [Concomitant]
     Indication: PRODUCT USED FOR UNKNOWN INDICATION
     Dosage: 40 MG QHS
     Route: 048
  24. PENTAMIDINE [Concomitant]
     Indication: PRODUCT USED FOR UNKNOWN INDICATION
     Dosage: 300 MG Q30D (DUE 02MAY2012)
     Route: 065
  25. PREGABALIN [Concomitant]
     Indication: NEUROPATHY PERIPHERAL
     Dosage: 100 TID
     Route: 048
  26. XOPENEX [Concomitant]
     Indication: BRONCHIAL HYPERREACTIVITY
     Dosage: 0.63 MG, BID (INH)
     Route: 065
     Dates: start: 20120306

REACTIONS (5)
  - Pain [Unknown]
  - Myalgia [Unknown]
  - Arthralgia [Unknown]
  - Fatigue [Unknown]
  - Anxiety [Unknown]
